FAERS Safety Report 14495185 (Version 3)
Quarter: 2018Q3

REPORT INFORMATION
  Report Type: Spontaneous
  Country: US (occurrence: US)
  Receive Date: 20180206
  Receipt Date: 20180918
  Transmission Date: 20181010
  Serious: No
  Sender: FDA-Public Use
  Company Number: US-ACTELION-A-NJ2018-167200

PATIENT
  Age: 36 Year
  Sex: Female
  Weight: 63.49 kg

DRUGS (2)
  1. ADCIRCA [Concomitant]
     Active Substance: TADALAFIL
  2. TRACLEER [Suspect]
     Active Substance: BOSENTAN
     Indication: PULMONARY HYPERTENSION
     Dosage: 62.5 MG, BID
     Route: 048

REACTIONS (6)
  - Oropharyngeal pain [Unknown]
  - Kidney infection [Unknown]
  - Urinary tract infection [Unknown]
  - Cystitis [Unknown]
  - Heart rate increased [Unknown]
  - Diarrhoea [Unknown]

NARRATIVE: CASE EVENT DATE: 20180627
